FAERS Safety Report 13700146 (Version 2)
Quarter: 2018Q1

REPORT INFORMATION
  Report Type: Report from Study
  Country: FR (occurrence: FR)
  Receive Date: 20170629
  Receipt Date: 20180108
  Transmission Date: 20180508
  Serious: Yes (Death, Hospitalization)
  Sender: FDA-Public Use
  Company Number: FR-ROCHE-1890817

PATIENT

DRUGS (5)
  1. VALGANCICLOVIR. [Suspect]
     Active Substance: VALGANCICLOVIR
     Indication: ANTIVIRAL TREATMENT
     Route: 065
  2. GANCICLOVIR. [Suspect]
     Active Substance: GANCICLOVIR
     Indication: ANTIVIRAL TREATMENT
     Route: 065
  3. CEFTRIAXONE. [Suspect]
     Active Substance: CEFTRIAXONE
     Indication: INFECTION
     Route: 065
  4. SULFAMETHOXAZOLE/TRIMETHOPRIM [Suspect]
     Active Substance: SULFAMETHOXAZOLE\TRIMETHOPRIM
     Indication: INFECTION
     Route: 065
  5. GLIBENCLAMIDE [Suspect]
     Active Substance: GLYBURIDE
     Indication: PRODUCT USED FOR UNKNOWN INDICATION
     Route: 065

REACTIONS (26)
  - Cholecystitis [Unknown]
  - Meningitis [Unknown]
  - Endocarditis [Unknown]
  - Osteonecrosis [Unknown]
  - Febrile neutropenia [Unknown]
  - Systemic inflammatory response syndrome [Unknown]
  - Bronchopulmonary aspergillosis [Unknown]
  - Tonsillitis [Unknown]
  - Colitis [Unknown]
  - Pelvic abscess [Fatal]
  - Parotitis [Unknown]
  - Deep vein thrombosis [Unknown]
  - Agranulocytosis [Fatal]
  - Oropharyngeal pain [Unknown]
  - Abscess [Unknown]
  - Infective spondylitis [Unknown]
  - Acute respiratory distress syndrome [Unknown]
  - Pneumonia [Unknown]
  - Pyelonephritis acute [Unknown]
  - Pyrexia [Unknown]
  - Abdominal abscess [Fatal]
  - Sepsis [Unknown]
  - Arthritis infective [Unknown]
  - Septic shock [Fatal]
  - Skin infection [Unknown]
  - Acute sinusitis [Unknown]
